FAERS Safety Report 8540775-3 (Version None)
Quarter: 2012Q3

REPORT INFORMATION
  Report Type: 
  Country: None (occurrence: None)
  Receive Date: 20120726
  Receipt Date: 20111010
  Transmission Date: 20120928
  Serious: Yes (Other)
  Sender: FDA-Public Use
  Company Number: CO-PFIZER INC-2012178898

PATIENT
  Age: 73 Year
  Sex: Female

DRUGS (5)
  1. LIPITOR [Suspect]
     Indication: DYSLIPIDAEMIA
     Dosage: 10 MG, 1X/DAY
  2. INSULATARD NPH [Concomitant]
     Dosage: 30 IU, 1X/DAY
  3. LOSARTAN [Concomitant]
     Dosage: 50 MG, 2X/DAY
  4. METFORMIN [Concomitant]
     Dosage: 850 MG, 1X/DAY
  5. AMLODIPINE [Concomitant]
     Dosage: 5 MG, 1X/DAY

REACTIONS (2)
  - VARICOSE VEIN [None]
  - CARDIOVASCULAR DISORDER [None]
